FAERS Safety Report 22086827 (Version 1)
Quarter: 2023Q1

REPORT INFORMATION
  Report Type: Report from Study
  Country: US (occurrence: US)
  Receive Date: 20230312
  Receipt Date: 20230312
  Transmission Date: 20230418
  Serious: No
  Sender: FDA-Public Use
  Company Number: US-002147023-NVSC2023US055954

PATIENT
  Sex: Female
  Weight: 113.4 kg

DRUGS (1)
  1. BETAMETHASONE [Suspect]
     Active Substance: BETAMETHASONE
     Indication: Product used for unknown indication
     Dosage: 0.05 %
     Route: 061

REACTIONS (5)
  - Psoriasis [Unknown]
  - Joint stiffness [Unknown]
  - Rash pruritic [Unknown]
  - Rash erythematous [Unknown]
  - Drug ineffective [Unknown]
